FAERS Safety Report 8531870-3 (Version None)
Quarter: 2012Q3

REPORT INFORMATION
  Report Type: 
  Country: None (occurrence: None)
  Receive Date: 20120723
  Receipt Date: 20120711
  Transmission Date: 20120928
  Serious: Yes (Hospitalization, Other)
  Sender: FDA-Public Use
  Company Number: US-009507513-1202USA01297

PATIENT

DRUGS (7)
  1. CALTRATE + D [Concomitant]
     Dosage: UNK
  2. FOSAMAX [Suspect]
     Indication: OSTEOPENIA
  3. FOSAMAX [Suspect]
     Indication: PROPHYLAXIS
  4. VITAMIN D (UNSPECIFIED) [Concomitant]
     Dosage: UNK
  5. FOSAMAX [Suspect]
     Indication: OSTEOPOROSIS
     Dosage: 70 MG, QW
     Route: 048
     Dates: start: 20030807, end: 20100325
  6. MULTI-VITAMINS [Concomitant]
     Dosage: UNK
  7. OMEGA-3 MARINE TRIGLYCERIDES [Concomitant]
     Dosage: UNK

REACTIONS (13)
  - FEMUR FRACTURE [None]
  - MYOCARDIAL ISCHAEMIA [None]
  - SKIN CANCER [None]
  - TOOTH DISORDER [None]
  - HYPERLIPIDAEMIA [None]
  - LUMBAR SPINAL STENOSIS [None]
  - LIMB ASYMMETRY [None]
  - ARTERIOSCLEROSIS [None]
  - TOOTH INFECTION [None]
  - HYPERTENSION [None]
  - DIZZINESS [None]
  - ROTATOR CUFF SYNDROME [None]
  - VENTRICULAR EXTRASYSTOLES [None]
